FAERS Safety Report 8975499 (Version 5)
Quarter: 2013Q1

REPORT INFORMATION
  Report Type: Report from Study
  Country: DE (occurrence: DE)
  Receive Date: 20121219
  Receipt Date: 20130221
  Transmission Date: 20140127
  Serious: Yes (Life-Threatening, Hospitalization, Other)
  Sender: FDA-Public Use
  Company Number: DE-ROCHE-1170728

PATIENT
  Sex: Female

DRUGS (7)
  1. RANIBIZUMAB [Suspect]
     Indication: RETINAL VEIN OCCLUSION
     Route: 050
     Dates: start: 20120710, end: 20120710
  2. RANIBIZUMAB [Suspect]
     Route: 050
     Dates: start: 20120817, end: 20120817
  3. RANIBIZUMAB [Suspect]
     Route: 050
     Dates: start: 20121016, end: 20121016
  4. RANIBIZUMAB [Suspect]
     Route: 050
     Dates: start: 20121114, end: 20121114
  5. RAMIPRIL [Concomitant]
  6. RASILEZ [Concomitant]
  7. INFLUVAC [Concomitant]
     Route: 065
     Dates: start: 20121002

REACTIONS (1)
  - Pulmonary embolism [Recovering/Resolving]
